FAERS Safety Report 16121304 (Version 1)
Quarter: 2019Q1

REPORT INFORMATION
  Report Type: Spontaneous
  Country: RO (occurrence: RO)
  Receive Date: 20190327
  Receipt Date: 20190327
  Transmission Date: 20190418
  Serious: Yes (Hospitalization)
  Sender: FDA-Public Use
  Company Number: RO-ACCORD-115434

PATIENT
  Age: 38 Year
  Sex: Female

DRUGS (4)
  1. GRANISETRON [Concomitant]
     Active Substance: GRANISETRON
     Indication: PREMEDICATION
     Route: 042
     Dates: start: 20180509, end: 20180509
  2. ARNETIN [Concomitant]
     Indication: PREMEDICATION
     Route: 042
     Dates: start: 20180509, end: 20180509
  3. DEXAMETHASONE. [Concomitant]
     Active Substance: DEXAMETHASONE
     Indication: PREMEDICATION
     Route: 042
     Dates: start: 20180509, end: 20180509
  4. OXALIPLATIN ACCORD [Suspect]
     Active Substance: OXALIPLATIN
     Indication: RECTAL ADENOCARCINOMA
     Dosage: RECOMMANDATED DOSE 150 MG
     Route: 042
     Dates: start: 20180509, end: 20180509

REACTIONS (3)
  - Paraesthesia [Recovered/Resolved]
  - Cold sweat [Recovered/Resolved]
  - Nausea [Recovered/Resolved]

NARRATIVE: CASE EVENT DATE: 20180509
